FAERS Safety Report 6651423-1 (Version None)
Quarter: 2010Q1

REPORT INFORMATION
  Report Type: 
  Country: None (occurrence: None)
  Receive Date: 20100325
  Receipt Date: 20100312
  Transmission Date: 20100710
  Serious: Yes (Hospitalization)
  Sender: FDA-Public Use
  Company Number: US-ELI_LILLY_AND_COMPANY-US201003003669

PATIENT
  Sex: Male

DRUGS (5)
  1. CYMBALTA [Suspect]
  2. WELLBUTRIN SR [Concomitant]
  3. NEURONTIN [Concomitant]
  4. VIAGRA [Concomitant]
  5. LAMOTRIGINE [Concomitant]

REACTIONS (2)
  - DEPRESSION SUICIDAL [None]
  - SUICIDAL IDEATION [None]
